FAERS Safety Report 10248539 (Version 1)
Quarter: 2014Q2

REPORT INFORMATION
  Report Type: Report from Study
  Country: IN (occurrence: IN)
  Receive Date: 20140620
  Receipt Date: 20140620
  Transmission Date: 20141212
  Serious: Yes (Death)
  Sender: FDA-Public Use
  Company Number: IN-ROCHE-1421422

PATIENT
  Age: 71 Year
  Sex: Male

DRUGS (1)
  1. MABTHERA [Suspect]
     Indication: NON-HODGKIN^S LYMPHOMA
     Route: 042
     Dates: start: 20140424

REACTIONS (1)
  - Asthenia [Fatal]
